FAERS Safety Report 6129668-9 (Version None)
Quarter: 2009Q1

REPORT INFORMATION
  Report Type: 
  Country: None (occurrence: None)
  Receive Date: 20090323
  Receipt Date: 20090323
  Transmission Date: 20090719
  Serious: Yes (Other)
  Sender: FDA-Public Use
  Company Number: None

PATIENT
  Sex: Female
  Weight: 51.36 kg

DRUGS (8)
  1. FOSAMAX [Suspect]
     Dosage: 70 MG Q WEEKLY ORAL
     Route: 048
     Dates: start: 20080910, end: 20090320
  2. AMBIEN [Concomitant]
  3. ATENOLOL [Concomitant]
  4. BENICAR [Concomitant]
  5. CELEXA [Concomitant]
  6. HYDROCHLOROTHIAZIDE [Concomitant]
  7. SIMVASTATIN [Concomitant]
  8. ZOSTAVAX (ZOSTER VACCINE LIVE (PF) ) [Concomitant]

REACTIONS (1)
  - OESOPHAGITIS [None]
